FAERS Safety Report 10931555 (Version 3)
Quarter: 2015Q2

REPORT INFORMATION
  Report Type: Spontaneous
  Country: US (occurrence: US)
  Receive Date: 20150319
  Receipt Date: 20150413
  Transmission Date: 20150821
  Serious: Yes (Other)
  Sender: FDA-Public Use
  Company Number: US-UNITED THERAPEUTICS-UNT-2015-002277

PATIENT
  Age: 42 Year
  Sex: Female
  Weight: 144.22 kg

DRUGS (2)
  1. TYVASO [Suspect]
     Active Substance: TREPROSTINIL
     Indication: PULMONARY HYPERTENSION
     Dosage: 18-54 ?G, QID
     Dates: start: 20150225
  2. TYVASO [Suspect]
     Active Substance: TREPROSTINIL
     Dosage: 18-54 ?G, QID
     Dates: start: 20150225

REACTIONS (11)
  - Cough [Not Recovered/Not Resolved]
  - Wheezing [Unknown]
  - Vomiting [Unknown]
  - Bronchitis [Unknown]
  - Dyspnoea [Unknown]
  - Asthma [Unknown]
  - Presyncope [Unknown]
  - Throat irritation [Unknown]
  - Dizziness [Unknown]
  - Blood pressure decreased [Unknown]
  - Headache [Not Recovered/Not Resolved]

NARRATIVE: CASE EVENT DATE: 201502
